FAERS Safety Report 5532773-9 (Version None)
Quarter: 2007Q4

REPORT INFORMATION
  Report Type: 
  Country: None (occurrence: None)
  Receive Date: 20071130
  Receipt Date: 20071130
  Transmission Date: 20080405
  Serious: Yes (Other)
  Sender: FDA-Public Use
  Company Number: None

PATIENT
  Age: 66 Year
  Sex: Female
  Weight: 90.7194 kg

DRUGS (1)
  1. DILTIAZEM [Suspect]
     Indication: HEART RATE DECREASED
     Dosage: 1 DAILY PO
     Route: 048

REACTIONS (4)
  - APHONIA [None]
  - COUGH [None]
  - DRUG INEFFECTIVE [None]
  - RHINORRHOEA [None]
